FAERS Safety Report 6816584-X (Version None)
Quarter: 2010Q2

REPORT INFORMATION
  Report Type: 
  Country: None (occurrence: None)
  Receive Date: 20100630
  Receipt Date: 20100621
  Transmission Date: 20101027
  Serious: Yes (Life-Threatening, Hospitalization)
  Sender: FDA-Public Use
  Company Number: 2010US001246

PATIENT
  Age: 25 Year
  Sex: Female

DRUGS (15)
  1. AMBISOME [Suspect]
     Indication: SEPSIS
     Dosage: 200 MG, UID/QD, IV DRIP
     Route: 042
     Dates: start: 20100331, end: 20100404
  2. VECURONIUM BROMIDE [Suspect]
     Indication: ENDOTRACHEAL INTUBATION
     Dosage: 8 MG, TOTAL DOSE
     Dates: start: 20100401, end: 20100401
  3. PROPOFOL [Concomitant]
     Indication: SEDATION
     Dosage: IV NOS
     Route: 042
     Dates: start: 20100401, end: 20100404
  4. PENTAZOCINE LACTATE [Suspect]
     Indication: ANALGESIC INTERVENTION SUPPORTIVE THERAPY
     Dosage: IV NOS
     Route: 042
     Dates: start: 20100404, end: 20100404
  5. DAUNORUBICIN HCL [Concomitant]
  6. CYTARABINE [Concomitant]
  7. MAXIPIME [Concomitant]
  8. PENICILLIN G POTASSIUM [Concomitant]
  9. VANCOMYCIN [Concomitant]
  10. DALACIN (CLINDAMYCIN HYROCHLORIDE) [Concomitant]
  11. PLATELETS [Concomitant]
  12. DORIBAX [Concomitant]
  13. RED BLOOD CELLS [Concomitant]
  14. SOLU-MEDROL [Concomitant]
  15. ELASPOL (SIVELESTAT SODIUM) [Concomitant]

REACTIONS (5)
  - BLOOD POTASSIUM DECREASED [None]
  - CLONIC CONVULSION [None]
  - RESPIRATORY DISTRESS [None]
  - RHABDOMYOLYSIS [None]
  - TACHYPNOEA [None]
